FAERS Safety Report 24773122 (Version 1)
Quarter: 2024Q4

REPORT INFORMATION
  Report Type: Spontaneous
  Country: IT (occurrence: IT)
  Receive Date: 20241225
  Receipt Date: 20241225
  Transmission Date: 20250114
  Serious: Yes (Death, Other)
  Sender: AMGEN
  Company Number: IT-AMGEN-ITASP2024250464

PATIENT

DRUGS (3)
  1. CARFILZOMIB [Suspect]
     Active Substance: CARFILZOMIB
     Indication: Plasma cell myeloma
     Dosage: 70 MILLIGRAM/SQ. METER, QWK (ON DAYS 1, 8, 15)
     Route: 040
  2. CYCLOPHOSPHAMIDE [Suspect]
     Active Substance: CYCLOPHOSPHAMIDE
     Indication: Plasma cell myeloma
     Dosage: 300 MILLIGRAM/SQ. METER, QWK (ON DAYS 1, 8, 15)
     Route: 048
  3. DEXAMETHASONE [Suspect]
     Active Substance: DEXAMETHASONE
     Indication: Plasma cell myeloma
     Dosage: 40 MILLIGRAM, QWK (ON DAYS 1, 8, 15, 22, IN 28-DAY CYCLES)
     Route: 048

REACTIONS (17)
  - Death [Fatal]
  - Sudden death [Fatal]
  - Neutropenia [Unknown]
  - Thrombocytopenia [Unknown]
  - Infection [Unknown]
  - Acute pulmonary oedema [Unknown]
  - Blood creatinine increased [Unknown]
  - Pyrexia [Unknown]
  - Fatigue [Unknown]
  - Headache [Unknown]
  - Haematotoxicity [Unknown]
  - Plasma cell myeloma [Unknown]
  - Pericardial effusion [Unknown]
  - Therapy partial responder [Unknown]
  - Ill-defined disorder [Unknown]
  - Neoplasm [Unknown]
  - Hypertension [Unknown]
